FAERS Safety Report 23198371 (Version 1)
Quarter: 2023Q4

REPORT INFORMATION
  Report Type: Spontaneous
  Country: US (occurrence: None)
  Receive Date: 20231117
  Receipt Date: 20231117
  Transmission Date: 20240109
  Serious: Yes (Hospitalization)
  Sender: FDA-Public Use
  Company Number: None

PATIENT
  Age: 3 Year
  Sex: Female

DRUGS (15)
  1. TOBRAMYCIN [Suspect]
     Active Substance: TOBRAMYCIN
     Indication: Pneumonia
     Dosage: 300 MG/5ML INHALATION??INHALE 5 ML (300 MG TOTAL) VIA NEBULIZER TWICE DAILY FOR 28 DAYS ON, 28 DAYS
     Route: 050
     Dates: start: 20230623
  2. TOBRAMYCIN [Suspect]
     Active Substance: TOBRAMYCIN
     Dosage: OTHER QUANTITY : 5ML (300 MG TOTAL);?FREQUENCY : AS DIRECTED;?OTHER ROUTE : VIA NEBULIZER;?
     Route: 050
  3. ALBUTEROL [Concomitant]
     Active Substance: ALBUTEROL
  4. BACLOFEN [Concomitant]
  5. BENADRYL [Concomitant]
     Active Substance: DIPHENHYDRAMINE HYDROCHLORIDE
  6. BUDESONIDE SUS [Concomitant]
  7. CARAFATE SUS [Concomitant]
  8. CETIRIZINE SOL [Concomitant]
  9. FERROUS SULF ELX [Concomitant]
  10. KEPPRA SOL [Concomitant]
  11. LORAZEPAM [Concomitant]
  12. OMEPRAZOLE + SUS [Concomitant]
  13. POLY-VI-SOL SOL IRON [Concomitant]
  14. SODIUM CHLOR NEB [Concomitant]
  15. TYLENOL [Concomitant]

REACTIONS (1)
  - Rhinovirus infection [None]

NARRATIVE: CASE EVENT DATE: 20231107
